FAERS Safety Report 14197688 (Version 5)
Quarter: 2018Q3

REPORT INFORMATION
  Report Type: Spontaneous
  Country: DE (occurrence: DE)
  Receive Date: 20171116
  Receipt Date: 20180920
  Transmission Date: 20181010
  Serious: Yes (Death, Other)
  Sender: FDA-Public Use
  Company Number: DE-AUROBINDO-AUR-APL-2017-43549

PATIENT
  Age: 27 Year
  Sex: Female
  Weight: 62 kg

DRUGS (4)
  1. LAMOTRIGINE. [Suspect]
     Active Substance: LAMOTRIGINE
     Dosage: 100/200 MG IN CHANGE EVERY DAY ()
     Route: 048
     Dates: start: 2008, end: 201704
  2. LAMOTRIGINE. [Suspect]
     Active Substance: LAMOTRIGINE
     Dosage: 300/200 MG IN CHANGE EVERY DAY ()
     Route: 048
     Dates: start: 201704, end: 20170621
  3. LAMOTRIGINE. [Suspect]
     Active Substance: LAMOTRIGINE
     Indication: GENERALISED TONIC-CLONIC SEIZURE
     Dosage: 100/200 MG IN CHANGE EVERY DAY ()
     Route: 048
     Dates: start: 20080101, end: 20170401
  4. LAMOTRIGINE. [Suspect]
     Active Substance: LAMOTRIGINE
     Dosage: 300/200 MG IN CHANGE EVERY DAY ()
     Route: 048
     Dates: start: 20170401, end: 20170621

REACTIONS (1)
  - Death [Fatal]

NARRATIVE: CASE EVENT DATE: 20170621
